FAERS Safety Report 5974985-6 (Version None)
Quarter: 2008Q4

REPORT INFORMATION
  Report Type: 
  Country: None (occurrence: None)
  Receive Date: 20081202
  Receipt Date: 20081120
  Transmission Date: 20090506
  Serious: Yes (Hospitalization)
  Sender: FDA-Public Use
  Company Number: FR-PFIZER INC-2008099963

PATIENT
  Sex: Female
  Weight: 60 kg

DRUGS (9)
  1. ANSATIPINE [Suspect]
     Route: 048
     Dates: start: 20080530, end: 20080726
  2. RIMIFON [Suspect]
     Route: 048
     Dates: start: 20080530, end: 20080726
  3. CLARITHROMYCIN [Suspect]
     Route: 048
     Dates: start: 20080530, end: 20080726
  4. MYAMBUTOL [Suspect]
     Route: 048
     Dates: start: 20080530, end: 20080726
  5. MOXIFLOXACIN HYDROCHLORIDE [Concomitant]
     Route: 048
     Dates: start: 20080530, end: 20080724
  6. AZATHIOPRINE [Concomitant]
  7. PREDNISONE TAB [Concomitant]
  8. CALCIUM CARBONATE/COLECALCIFEROL [Concomitant]
  9. RITUXIMAB [Concomitant]
     Dates: start: 20080312, end: 20080402

REACTIONS (4)
  - ARTHRALGIA [None]
  - EOSINOPHILIA [None]
  - RASH MACULO-PAPULAR [None]
  - VOMITING [None]
